FAERS Safety Report 4331468-7 (Version None)
Quarter: 2004Q1

REPORT INFORMATION
  Report Type: 
  Country: None (occurrence: None)
  Receive Date: 20040329
  Receipt Date: 20040315
  Transmission Date: 20041129
  Serious: Yes (Disabling, Other)
  Sender: FDA-Public Use
  Company Number: NSADSS2002029990

PATIENT
  Age: 28 Year
  Sex: Female
  Weight: 54.4316 kg

DRUGS (9)
  1. LEVAQUIN [Suspect]
     Indication: CHRONIC SINUSITIS
     Dosage: 500 MG, 1 IN 1 DAY, ORAL
     Route: 048
     Dates: start: 20010401
  2. LEVAQUIN [Suspect]
     Indication: SINUSITIS
     Dosage: 500 MG, 1 IN 1 DAY, ORAL
     Route: 048
     Dates: start: 20010901
  3. LEVAQUIN [Suspect]
     Indication: SINUSITIS
     Dosage: 500 MG, 1 IN 1 DAY, ORAL
     Route: 048
     Dates: start: 20011228
  4. ELAVIL (AMITRIPTYLINE HYDROCHLORIDE) TABLETS [Concomitant]
  5. RHINOCORT (BUDESONIDE) INHALATION [Concomitant]
  6. TOPAMAX [Concomitant]
  7. IMITREX [Concomitant]
  8. SYNTHROID [Concomitant]
  9. AUGMENTIN [Concomitant]

REACTIONS (4)
  - ARTHROPATHY [None]
  - CHONDROMALACIA [None]
  - LIGAMENT INJURY [None]
  - MUSCLE RUPTURE [None]
